FAERS Safety Report 9415042 (Version 2)
Quarter: 2013Q3

REPORT INFORMATION
  Report Type: Spontaneous
  Country: US (occurrence: US)
  Receive Date: 20130723
  Receipt Date: 20130919
  Transmission Date: 20140515
  Serious: Yes (Hospitalization, Other)
  Sender: FDA-Public Use
  Company Number: US-UCBSA-091144

PATIENT
  Age: 31 Year
  Sex: Female

DRUGS (2)
  1. VIMPAT [Suspect]
     Indication: COMPLEX PARTIAL SEIZURES
     Dosage: 6.6 G
  2. VIMPAT [Suspect]
     Indication: COMPLEX PARTIAL SEIZURES
     Dosage: DOSE: UNKNOWN

REACTIONS (5)
  - Suicide attempt [Recovered/Resolved]
  - Status epilepticus [Recovered/Resolved]
  - Intentional overdose [Unknown]
  - Conduction disorder [Unknown]
  - Treatment noncompliance [Unknown]
